FAERS Safety Report 8071249 (Version 3)
Quarter: 2015Q2

REPORT INFORMATION
  Report Type: Report from Study
  Country: GB (occurrence: GB)
  Receive Date: 20110805
  Receipt Date: 20150513
  Transmission Date: 20150821
  Serious: Yes (Hospitalization, Other)
  Sender: FDA-Public Use
  Company Number: GB-ROCHE-793462

PATIENT
  Age: 66 Year
  Sex: Male
  Weight: 67.1 kg

DRUGS (4)
  1. CAPECITABINE. [Suspect]
     Active Substance: CAPECITABINE
     Indication: ADENOCARCINOMA GASTRIC
     Dosage: LAST DOSE PRIOR TO SAE: 01 MARCH 2011
     Route: 048
  2. BEVACIZUMAB [Suspect]
     Active Substance: BEVACIZUMAB
     Indication: ADENOCARCINOMA GASTRIC
     Dosage: LAST DOSE PRIOR TO SAE: 20 OCTOBER 2010
     Route: 042
  3. CISPLATIN. [Suspect]
     Active Substance: CISPLATIN
     Indication: ADENOCARCINOMA GASTRIC
     Dosage: LAST DOSE PRIOR TO SAE: 01 MARCH 2011
     Route: 042
     Dates: start: 20100908
  4. EPIRUBICIN [Suspect]
     Active Substance: EPIRUBICIN
     Indication: ADENOCARCINOMA GASTRIC
     Dosage: LAST DOSE PRIOR TO SAE: 01 MARCH 2011
     Route: 042
     Dates: start: 20100908

REACTIONS (2)
  - Impaired healing [Recovered/Resolved]
  - VIIth nerve paralysis [Not Recovered/Not Resolved]

NARRATIVE: CASE EVENT DATE: 20110215
